FAERS Safety Report 18726147 (Version 2)
Quarter: 2021Q1

REPORT INFORMATION
  Report Type: Spontaneous
  Country: CA (occurrence: CA)
  Receive Date: 20210111
  Receipt Date: 20210222
  Transmission Date: 20210419
  Serious: Yes (Other)
  Sender: FDA-Public Use
  Company Number: CA-ROCHE-2745766

PATIENT
  Age: 40 Year
  Sex: Female

DRUGS (5)
  1. LUCENTIS [Suspect]
     Active Substance: RANIBIZUMAB
     Indication: DIABETIC RETINAL OEDEMA
     Dosage: SOLUTION INTRAVITREAL
     Route: 031
  2. AVASTIN [Suspect]
     Active Substance: BEVACIZUMAB
     Dosage: SOLUTION INTRAVENOUS
     Route: 031
  3. AVASTIN [Suspect]
     Active Substance: BEVACIZUMAB
     Indication: DIABETIC RETINAL OEDEMA
     Dosage: SOLUTION INTRAVENOUS
     Route: 031
  4. LUCENTIS [Suspect]
     Active Substance: RANIBIZUMAB
     Dosage: SOLUTION INTRAVITREAL
     Route: 031
  5. HUMALOG [Concomitant]
     Active Substance: INSULIN LISPRO
     Indication: DIABETIC RETINAL OEDEMA
     Route: 065

REACTIONS (4)
  - Nausea [Not Recovered/Not Resolved]
  - Eye discharge [Not Recovered/Not Resolved]
  - Eye haemorrhage [Not Recovered/Not Resolved]
  - Eye pruritus [Not Recovered/Not Resolved]
